FAERS Safety Report 18224828 (Version 1)
Quarter: 2020Q3

REPORT INFORMATION
  Report Type: Spontaneous
  Country: US (occurrence: US)
  Receive Date: 20200902
  Receipt Date: 20200902
  Transmission Date: 20201103
  Serious: No
  Sender: FDA-Public Use
  Company Number: US-VELOXIS PHARMACEUTICALS-2020VELUS-000212

PATIENT
  Sex: Male

DRUGS (1)
  1. ENVARSUS XR [Suspect]
     Active Substance: TACROLIMUS
     Indication: PROPHYLAXIS AGAINST TRANSPLANT REJECTION
     Dosage: 2.25 MG, QD
     Route: 065

REACTIONS (3)
  - Headache [Recovered/Resolved]
  - Migraine [Recovered/Resolved]
  - Prophylaxis against transplant rejection [Unknown]
